FAERS Safety Report 8033597-3 (Version None)
Quarter: 2012Q1

REPORT INFORMATION
  Report Type: 
  Country: None (occurrence: None)
  Receive Date: 20120110
  Receipt Date: 20120103
  Transmission Date: 20120608
  Serious: Yes (Hospitalization, Other)
  Sender: FDA-Public Use
  Company Number: US-SANOFI-AVENTIS-2012SA000911

PATIENT
  Sex: Female

DRUGS (5)
  1. AMBIEN [Suspect]
     Dates: start: 19970101
  2. AMBIEN [Suspect]
  3. AMBIEN [Suspect]
  4. AMBIEN [Suspect]
  5. AMBIEN [Suspect]
     Dates: start: 20020101

REACTIONS (9)
  - DRUG DEPENDENCE [None]
  - DRUG ABUSE [None]
  - MIDDLE INSOMNIA [None]
  - PARAESTHESIA [None]
  - ADVERSE EVENT [None]
  - SURGERY [None]
  - HYPERTENSION [None]
  - TACHYCARDIA [None]
  - CONVULSION [None]
